FAERS Safety Report 5018077-1 (Version None)
Quarter: 2006Q2

REPORT INFORMATION
  Report Type: 
  Country: None (occurrence: None)
  Receive Date: 20060530
  Receipt Date: 20060517
  Transmission Date: 20061013
  Serious: Yes (Hospitalization, Disabling)
  Sender: FDA-Public Use
  Company Number: 2006011169

PATIENT
  Age: 57 Year
  Sex: Male
  Weight: 94.8 kg

DRUGS (7)
  1. SUTENT [Suspect]
     Indication: GASTROINTESTINAL STROMAL TUMOUR
     Dosage: 50 MG (50 MG, CYCLIC) ORAL
     Route: 048
     Dates: start: 20060106
  2. ATENOLOL [Concomitant]
  3. NORVASC [Concomitant]
  4. LIPITOR [Concomitant]
  5. ASPIRIN [Concomitant]
  6. NITROGLYCERIN [Concomitant]
  7. HYTRIN [Concomitant]

REACTIONS (18)
  - ASTHENIA [None]
  - BLISTER [None]
  - CELLULITIS [None]
  - DIFFICULTY IN WALKING [None]
  - DISEASE PROGRESSION [None]
  - DRUG INTERACTION [None]
  - DYSSTASIA [None]
  - ERYTHEMA [None]
  - GUILLAIN-BARRE SYNDROME [None]
  - MALAISE [None]
  - MUSCULOSKELETAL DISCOMFORT [None]
  - NEURITIS [None]
  - NEUROPATHY [None]
  - PALMAR-PLANTAR ERYTHRODYSAESTHESIA SYNDROME [None]
  - PANCYTOPENIA [None]
  - RASH [None]
  - SKIN EXFOLIATION [None]
  - SPINAL CORD COMPRESSION [None]
